FAERS Safety Report 11139720 (Version 1)
Quarter: 2015Q2

REPORT INFORMATION
  Report Type: Spontaneous
  Country: US (occurrence: US)
  Receive Date: 20150527
  Receipt Date: 20150527
  Transmission Date: 20150821
  Serious: Yes (Other)
  Sender: FDA-Public Use
  Company Number: US-ELI_LILLY_AND_COMPANY-US201505006804

PATIENT
  Sex: Male

DRUGS (1)
  1. EFFIENT [Suspect]
     Active Substance: PRASUGREL HYDROCHLORIDE
     Indication: PRODUCT USED FOR UNKNOWN INDICATION
     Dosage: UNK
     Route: 065
     Dates: start: 20130907, end: 20140511

REACTIONS (6)
  - Diarrhoea [Unknown]
  - Haematuria [Unknown]
  - Haemorrhage [Unknown]
  - Renal cyst [Unknown]
  - Vomiting [Unknown]
  - Abdominal pain [Unknown]
